FAERS Safety Report 24636445 (Version 7)
Quarter: 2025Q4

REPORT INFORMATION
  Report Type: Report from Study
  Country: JP (occurrence: JP)
  Receive Date: 20241119
  Receipt Date: 20251026
  Transmission Date: 20260118
  Serious: Yes (Other)
  Sender: ABBVIE
  Company Number: JP-TAKEDA-2024TJP016225

PATIENT
  Age: 48 Year
  Sex: Male
  Weight: 62 kg

DRUGS (3)
  1. LEUPLIN [Suspect]
     Active Substance: LEUPROLIDE ACETATE
     Indication: Bulbospinal muscular atrophy congenital
     Dosage: FROM STRENGTH:11.25 MILLIGRAM, Q3MONTHS
     Route: 058
     Dates: start: 20221209, end: 20240524
  2. LEUPLIN [Suspect]
     Active Substance: LEUPROLIDE ACETATE
     Route: 058
     Dates: start: 20241108, end: 20241108
  3. LEUPLIN [Suspect]
     Active Substance: LEUPROLIDE ACETATE
     Dosage: 11.25 MILLIGRAM, Q3MONTHS
     Route: 058
     Dates: start: 20250131

REACTIONS (4)
  - Injection site ulcer [Recovered/Resolved]
  - Needle issue [Recovered/Resolved]
  - Accidental underdose [Recovered/Resolved]
  - Dyslipidaemia [Not Recovered/Not Resolved]

NARRATIVE: CASE EVENT DATE: 20231124
